FAERS Safety Report 8393094-2 (Version None)
Quarter: 2012Q2

REPORT INFORMATION
  Report Type: 
  Country: None (occurrence: None)
  Receive Date: 20120529
  Receipt Date: 20120418
  Transmission Date: 20120825
  Serious: No
  Sender: FDA-Public Use
  Company Number: US-ABBOTT-12P-163-0928037-00

PATIENT
  Sex: Male
  Weight: 102.15 kg

DRUGS (7)
  1. ANDROGEL [Suspect]
     Dosage: 3 PUMPS DAILY
     Route: 061
     Dates: start: 20120301
  2. TRIMIX COMPOUND [Suspect]
     Indication: ERECTILE DYSFUNCTION
     Dosage: DRAW UP IN INJECTION FOR ED
  3. LISINOPRIL [Suspect]
     Indication: HYPERTENSION
  4. ANDROGEL [Suspect]
     Indication: BLOOD TESTOSTERONE DECREASED
     Dosage: 2 PUMPS DAILY
     Route: 061
     Dates: start: 20120201, end: 20120301
  5. ATENOLOL [Suspect]
     Indication: HYPERTENSION
  6. HYDROCHLOROTHIAZIDE [Concomitant]
     Indication: HYPERTENSION
  7. CRESTOR [Suspect]
     Indication: BLOOD CHOLESTEROL INCREASED

REACTIONS (3)
  - PROSTATIC SPECIFIC ANTIGEN INCREASED [None]
  - SEMEN VOLUME DECREASED [None]
  - BLOOD TESTOSTERONE DECREASED [None]
